FAERS Safety Report 11578023 (Version 2)
Quarter: 2015Q4

REPORT INFORMATION
  Report Type: Report from Study
  Country: DE (occurrence: DE)
  Receive Date: 20150930
  Receipt Date: 20151012
  Transmission Date: 20160304
  Serious: Yes (Death, Other)
  Sender: FDA-Public Use
  Company Number: PHHY2014DE061845

PATIENT
  Sex: Male

DRUGS (1)
  1. GLIVEC [Suspect]
     Active Substance: IMATINIB MESYLATE
     Indication: GASTROINTESTINAL STROMAL TUMOUR
     Dosage: 400 MG, QD
     Route: 048
     Dates: start: 20121127

REACTIONS (7)
  - Aneurysm [Recovered/Resolved]
  - Ejection fraction decreased [Recovered/Resolved]
  - Coronary artery disease [Unknown]
  - Death [Fatal]
  - Iron deficiency anaemia [Unknown]
  - Arterial thrombosis [Recovered/Resolved]
  - Anaemia [Unknown]

NARRATIVE: CASE EVENT DATE: 201311
